FAERS Safety Report 7507132-X (Version None)
Quarter: 2011Q2

REPORT INFORMATION
  Report Type: 
  Country: None (occurrence: None)
  Receive Date: 20110526
  Receipt Date: 20110517
  Transmission Date: 20111010
  Serious: Yes (Hospitalization)
  Sender: FDA-Public Use
  Company Number: BR-MEDIMMUNE-MEDI-0013035

PATIENT
  Sex: Male
  Weight: 9.84 kg

DRUGS (9)
  1. SYNAGIS [Suspect]
     Indication: BRONCHOPULMONARY DYSPLASIA
     Route: 030
     Dates: start: 20100304
  2. GEVITAL [Concomitant]
     Indication: COLITIS ULCERATIVE
     Route: 048
  3. RANITIDINE HYDROCHLORIDE [Concomitant]
     Route: 048
     Dates: start: 20100401
  4. FLUTICASONE PROPIONATE [Concomitant]
     Route: 048
     Dates: start: 20100901
  5. DOMPERIDONE [Concomitant]
     Route: 048
     Dates: start: 20100401
  6. MONTELUKAST SODIUM [Concomitant]
     Indication: BRONCHOPULMONARY DYSPLASIA
     Route: 048
     Dates: start: 20100801
  7. FERROGLYCINATE CHELATE [Concomitant]
     Indication: ANAEMIA PROPHYLAXIS
     Route: 048
  8. SALBUTAMOL SULFATE [Concomitant]
     Route: 048
  9. SODIUM CHLORIDE 0.9% [Concomitant]
     Indication: RESPIRATORY DISORDER
     Route: 055

REACTIONS (8)
  - DYSPNOEA [None]
  - PNEUMONIA [None]
  - RESPIRATORY SYNCYTIAL VIRUS INFECTION [None]
  - DYSPLASIA [None]
  - URINARY TRACT INFECTION [None]
  - FATIGUE [None]
  - BRONCHIOLITIS [None]
  - PYREXIA [None]
